FAERS Safety Report 7891204 (Version 1)
Quarter: 2020Q3

REPORT INFORMATION
  Report Type: Report from Study
  Country: US (occurrence: US)
  Receive Date: 20110408
  Receipt Date: 20110408
  Transmission Date: 20201104
  Serious: Yes (Other)
  Sender: FDA-Public Use
  Company Number: US-ROCHE-768311

PATIENT
  Age: 65 Year
  Sex: Female
  Weight: 52 kg

DRUGS (1)
  1. IBANDRONIC ACID. [Suspect]
     Active Substance: IBANDRONIC ACID
     Route: 048
     Dates: start: 20081216, end: 20110308

REACTIONS (4)
  - Hypokalaemia [Unknown]
  - Ventricular arrhythmia [Unknown]
  - Diarrhoea [Unknown]
  - Ventricular extrasystoles [None]

NARRATIVE: CASE EVENT DATE: 20110308
